FAERS Safety Report 7832009-X (Version None)
Quarter: 2011Q4

REPORT INFORMATION
  Report Type: 
  Country: None (occurrence: None)
  Receive Date: 20111021
  Receipt Date: 20111013
  Transmission Date: 20120403
  Serious: Yes (Hospitalization)
  Sender: FDA-Public Use
  Company Number: JP-ASTRAZENECA-2010SE35604

PATIENT
  Age: 708 Month
  Sex: Female
  Weight: 53 kg

DRUGS (2)
  1. ARIMIDEX [Suspect]
     Indication: BREAST CANCER
     Route: 048
     Dates: start: 20091130, end: 20100729
  2. VITAMIN PREPARATION (OTC) [Concomitant]

REACTIONS (1)
  - INTERSTITIAL LUNG DISEASE [None]
